FAERS Safety Report 6258235-1 (Version None)
Quarter: 2009Q3

REPORT INFORMATION
  Report Type: 
  Country: None (occurrence: None)
  Receive Date: 20090702
  Receipt Date: 20090702
  Transmission Date: 20100115
  Serious: Yes (Hospitalization)
  Sender: FDA-Public Use
  Company Number: None

PATIENT
  Age: 19 Year
  Sex: Female
  Weight: 47.0834 kg

DRUGS (1)
  1. YAZ [Suspect]
     Dosage: 1 TABLET DAILY PO
     Route: 048

REACTIONS (1)
  - PULMONARY EMBOLISM [None]
